FAERS Safety Report 4727985-8 (Version None)
Quarter: 2005Q3

REPORT INFORMATION
  Report Type: 
  Country: None (occurrence: None)
  Receive Date: 20050725
  Receipt Date: 20050329
  Transmission Date: 20060218
  Serious: No
  Sender: FDA-Public Use
  Company Number: USA050394457

PATIENT
  Age: 37 Year
  Sex: Male

DRUGS (4)
  1. STRATTERA [Suspect]
     Indication: PSYCHOMOTOR HYPERACTIVITY
     Dosage: 80 MG DAY
     Dates: start: 20050306, end: 20050328
  2. CYMBALTA [Suspect]
     Indication: DEPRESSION
     Dosage: 60 MG DAY
     Dates: start: 20050301, end: 20050301
  3. NEXIUM [Concomitant]
  4. LEXAPRO [Concomitant]

REACTIONS (8)
  - ASTHENIA [None]
  - BLOOD PRESSURE INCREASED [None]
  - CHEST DISCOMFORT [None]
  - DYSURIA [None]
  - EJACULATION DISORDER [None]
  - NAUSEA [None]
  - SOMNOLENCE [None]
  - URINE FLOW DECREASED [None]
